FAERS Safety Report 15778567 (Version 3)
Quarter: 2019Q1

REPORT INFORMATION
  Report Type: Spontaneous
  Country: AU (occurrence: AU)
  Receive Date: 20181231
  Receipt Date: 20190304
  Transmission Date: 20190417
  Serious: Yes (Hospitalization, Other)
  Sender: FDA-Public Use
  Company Number: AU-GILEAD-2018-0382738

PATIENT
  Age: 56 Year
  Sex: Male

DRUGS (6)
  1. DESCOVY [Suspect]
     Active Substance: EMTRICITABINE\TENOFOVIR ALAFENAMIDE FUMARATE
     Indication: HIV INFECTION
     Dosage: UNK
     Route: 065
  2. DOLUTEGRAVIR [Concomitant]
     Active Substance: DOLUTEGRAVIR
  3. DESCOVY [Suspect]
     Active Substance: EMTRICITABINE\TENOFOVIR ALAFENAMIDE FUMARATE
     Indication: HEPATITIS B
     Dosage: 1 DF, QD
     Route: 065
  4. PREZCOBIX [Concomitant]
     Active Substance: COBICISTAT\DARUNAVIR ETHANOLATE
  5. ENTECAVIR. [Concomitant]
     Active Substance: ENTECAVIR
     Indication: HEPATITIS B
  6. TENOFOVIR DISOPROXIL FUMARATE. [Suspect]
     Active Substance: TENOFOVIR DISOPROXIL FUMARATE
     Indication: HIV INFECTION
     Dosage: 1 DF OQD, OR Q72 HOURS
     Route: 065

REACTIONS (3)
  - Renal injury [Unknown]
  - Fanconi syndrome acquired [Unknown]
  - Hepatitis B [Not Recovered/Not Resolved]
